FAERS Safety Report 21260822 (Version 1)
Quarter: 2022Q3

REPORT INFORMATION
  Report Type: Spontaneous
  Country: CA (occurrence: CA)
  Receive Date: 20220826
  Receipt Date: 20220826
  Transmission Date: 20221027
  Serious: Yes (Other)
  Sender: FDA-Public Use
  Company Number: None

PATIENT
  Age: 46 Year
  Sex: Male

DRUGS (3)
  1. METHOTREXATE [Suspect]
     Active Substance: METHOTREXATE
     Indication: Crohn^s disease
     Route: 042
  2. AZATHIOPRINE [Concomitant]
     Active Substance: AZATHIOPRINE
  3. PREDNISONE ACETATE [Concomitant]
     Active Substance: PREDNISONE ACETATE

REACTIONS (3)
  - Drug ineffective [Unknown]
  - Caecectomy [Unknown]
  - Small intestinal resection [Unknown]
